FAERS Safety Report 23830690 (Version 1)
Quarter: 2024Q2

REPORT INFORMATION
  Report Type: Spontaneous
  Country: US (occurrence: None)
  Receive Date: 20240507
  Receipt Date: 20240507
  Transmission Date: 20240716
  Serious: Yes (Death)
  Sender: FDA-Public Use
  Company Number: None

PATIENT
  Age: 67 Year
  Sex: Female
  Weight: 62.9 kg

DRUGS (1)
  1. YESCARTA [Suspect]
     Active Substance: AXICABTAGENE CILOLEUCEL
     Indication: Diffuse large B-cell lymphoma
     Dosage: OTHER FREQUENCY : ONE TIME;?
     Route: 040

REACTIONS (8)
  - Pyrexia [None]
  - Alpha haemolytic streptococcal infection [None]
  - Facial paralysis [None]
  - Neurotoxicity [None]
  - Consciousness fluctuating [None]
  - Toxic encephalopathy [None]
  - Hypotension [None]
  - Respiratory failure [None]

NARRATIVE: CASE EVENT DATE: 20240422
